FAERS Safety Report 10426969 (Version 1)
Quarter: 2014Q3

REPORT INFORMATION
  Report Type: Spontaneous
  Country: US (occurrence: US)
  Receive Date: 20140903
  Receipt Date: 20140903
  Transmission Date: 20150326
  Serious: Yes (Other)
  Sender: FDA-Public Use
  Company Number: US-PFIZER INC-2014244961

PATIENT
  Age: 38 Year
  Sex: Female
  Weight: 54.42 kg

DRUGS (1)
  1. SERTRALINE HCL [Suspect]
     Active Substance: SERTRALINE HYDROCHLORIDE
     Indication: ANXIETY
     Dosage: 100 MG, DAILY

REACTIONS (2)
  - Coeliac disease [Unknown]
  - Pruritus generalised [Unknown]
